FAERS Safety Report 16277300 (Version 1)
Quarter: 2019Q2

REPORT INFORMATION
  Report Type: Report from Study
  Country: CA (occurrence: CA)
  Receive Date: 20190506
  Receipt Date: 20190506
  Transmission Date: 20190711
  Serious: Yes (Other)
  Sender: FDA-Public Use
  Company Number: CA-TEVA-2019-CA-1045215

PATIENT
  Sex: Female

DRUGS (3)
  1. VITAMIN D2 [Concomitant]
     Active Substance: ERGOCALCIFEROL
  2. COPAXONE [Suspect]
     Active Substance: GLATIRAMER ACETATE
     Indication: MULTIPLE SCLEROSIS
     Dosage: 20 MILLIGRAM/MILLILITERS DAILY; PRE FILLED SYRINGES
     Route: 065
     Dates: start: 20180529
  3. MOVISSE 28 [Concomitant]
     Indication: CONTRACEPTION

REACTIONS (9)
  - Immediate post-injection reaction [Unknown]
  - Chest discomfort [Unknown]
  - Dysgeusia [Unknown]
  - Dyspnoea [Unknown]
  - Fatigue [Not Recovered/Not Resolved]
  - Vitreous floaters [Unknown]
  - Headache [Unknown]
  - Multiple sclerosis [Unknown]
  - Gait disturbance [Not Recovered/Not Resolved]
